FAERS Safety Report 7934964-6 (Version None)
Quarter: 2011Q4

REPORT INFORMATION
  Report Type: 
  Country: None (occurrence: None)
  Receive Date: 20111122
  Receipt Date: 20111114
  Transmission Date: 20120403
  Serious: Yes (Hospitalization, Other)
  Sender: FDA-Public Use
  Company Number: DE-BAYER-2011-112191

PATIENT

DRUGS (15)
  1. SULFAMETHOXAZOLE AND TRIMETHOPRIM [Interacting]
     Indication: PRODUCT USED FOR UNKNOWN INDICATION
  2. IBUPROFEN [Interacting]
     Indication: PRODUCT USED FOR UNKNOWN INDICATION
  3. NAPROXEN SODIUM [Interacting]
     Indication: PRODUCT USED FOR UNKNOWN INDICATION
  4. LEVOFLOXACIN [Interacting]
     Indication: PRODUCT USED FOR UNKNOWN INDICATION
  5. OFLOXACIN [Suspect]
     Indication: PRODUCT USED FOR UNKNOWN INDICATION
  6. PHENPROCOUMON [Interacting]
     Indication: PRODUCT USED FOR UNKNOWN INDICATION
  7. METRONIDAZOLE [Interacting]
     Indication: PRODUCT USED FOR UNKNOWN INDICATION
  8. CEPHALOSPORINS AND RELATED SUBSTANCES [Suspect]
     Indication: PRODUCT USED FOR UNKNOWN INDICATION
  9. CIPROFLOXACIN [Interacting]
     Indication: PRODUCT USED FOR UNKNOWN INDICATION
  10. MOXIFLOXACIN [Interacting]
     Indication: PRODUCT USED FOR UNKNOWN INDICATION
  11. CLOPIDOGREL [Interacting]
     Indication: PRODUCT USED FOR UNKNOWN INDICATION
  12. DICLOFENAC SODIUM [Interacting]
     Indication: PRODUCT USED FOR UNKNOWN INDICATION
  13. KETOPROFEN [Interacting]
     Indication: PRODUCT USED FOR UNKNOWN INDICATION
  14. CLAVULANATE POTASSIUM [Suspect]
     Indication: PRODUCT USED FOR UNKNOWN INDICATION
  15. CHOLESTEROL- AND TRIGLYCERIDE REDUCERS [Suspect]
     Indication: PRODUCT USED FOR UNKNOWN INDICATION

REACTIONS (6)
  - HAEMORRHAGE [None]
  - DRUG INTERACTION [None]
  - CEREBRAL HAEMORRHAGE [None]
  - RESPIRATORY TRACT HAEMORRHAGE [None]
  - GASTROINTESTINAL HAEMORRHAGE [None]
  - UROGENITAL HAEMORRHAGE [None]
